FAERS Safety Report 12971190 (Version 2)
Quarter: 2016Q4

REPORT INFORMATION
  Report Type: Spontaneous
  Country: US (occurrence: US)
  Receive Date: 20161123
  Receipt Date: 20161128
  Transmission Date: 20170207
  Serious: No
  Sender: FDA-Public Use
  Company Number: US-JAZZ-2016-US-019345

PATIENT
  Sex: Male

DRUGS (31)
  1. TESTOSTERONE CYPIONATE. [Concomitant]
     Active Substance: TESTOSTERONE CYPIONATE
  2. ADDERALL [Concomitant]
     Active Substance: AMPHETAMINE ASPARTATE\AMPHETAMINE SULFATE\DEXTROAMPHETAMINE SACCHARATE\DEXTROAMPHETAMINE SULFATE
  3. ARGININE [Concomitant]
     Active Substance: ARGININE
  4. VITAMIN E                          /00110501/ [Concomitant]
     Active Substance: TOCOPHEROL
  5. VYVANSE [Concomitant]
     Active Substance: LISDEXAMFETAMINE DIMESYLATE
  6. HYDROCODONE BITARTRATE AND ACETAMINOPHEN [Concomitant]
     Active Substance: ACETAMINOPHEN\HYDROCODONE BITARTRATE
  7. FLURAZEPAM [Concomitant]
     Active Substance: FLURAZEPAM\FLURAZEPAM HYDROCHLORIDE
  8. PROPRANOLOL [Concomitant]
     Active Substance: PROPRANOLOL\PROPRANOLOL HYDROCHLORIDE
  9. CARNITINE                          /00878601/ [Concomitant]
  10. BACLOFEN. [Concomitant]
     Active Substance: BACLOFEN
  11. AVODART [Concomitant]
     Active Substance: DUTASTERIDE
  12. L THEANINE [Concomitant]
  13. LORAZEPAM. [Concomitant]
     Active Substance: LORAZEPAM
  14. MARIJUANA [Concomitant]
     Active Substance: CANNABIS SATIVA SUBSP. INDICA TOP
  15. TRUVADA [Concomitant]
     Active Substance: EMTRICITABINE\TENOFOVIR DISOPROXIL FUMARATE
  16. VITAMIN C [Concomitant]
     Active Substance: ASCORBIC ACID
  17. XYREM [Suspect]
     Active Substance: SODIUM OXYBATE
     Dosage: DOSE ADJUSTMENTS
     Route: 048
     Dates: start: 201212, end: 201512
  18. OXYCODONE AND ACETAMINOPHEN [Concomitant]
     Active Substance: ACETAMINOPHEN\OXYCODONE HYDROCHLORIDE
  19. DEXILANT [Concomitant]
     Active Substance: DEXLANSOPRAZOLE
  20. GARLIC                             /01570501/ [Concomitant]
     Active Substance: GARLIC
  21. XYREM [Suspect]
     Active Substance: SODIUM OXYBATE
     Indication: NARCOLEPSY
     Dosage: 2.25 G, BID
     Route: 048
     Dates: start: 201212, end: 201212
  22. DIPHENHYDRAMINE. [Concomitant]
     Active Substance: DIPHENHYDRAMINE
  23. MULTIVITAMINS                      /00116001/ [Concomitant]
  24. CHROMIUM PICOLINATE [Concomitant]
     Active Substance: CHROMIUM PICOLINATE
  25. DHEA [Concomitant]
     Active Substance: PRASTERONE
  26. BROMELAIN [Concomitant]
     Active Substance: BROMELAINS
  27. XYREM [Suspect]
     Active Substance: SODIUM OXYBATE
     Dosage: 4.5 G, BID
     Route: 048
     Dates: start: 201512, end: 2016
  28. KLONOPIN [Concomitant]
     Active Substance: CLONAZEPAM
  29. DEMEROL [Concomitant]
     Active Substance: MEPERIDINE HYDROCHLORIDE
  30. CIALIS [Concomitant]
     Active Substance: TADALAFIL
  31. MAGNESIUM OXIDE. [Concomitant]
     Active Substance: MAGNESIUM OXIDE

REACTIONS (1)
  - Unevaluable event [Not Recovered/Not Resolved]

NARRATIVE: CASE EVENT DATE: 2016
